FAERS Safety Report 8760188 (Version 1)
Quarter: 2012Q4

REPORT INFORMATION
  Report Type: Spontaneous
  Country: US (occurrence: None)
  Receive Date: 20120829
  Receipt Date: 20120829
  Transmission Date: 20130627
  Serious: Yes (Life-Threatening, Other)
  Sender: FDA-Public Use
  Company Number: None

PATIENT
  Age: 65 Year
  Sex: Male
  Weight: 72.58 kg

DRUGS (3)
  1. ATORVASTATIN [Suspect]
     Indication: CHOLESTEROL HIGH
     Dates: start: 20120710
  2. ATORVASTATIN [Suspect]
     Indication: CHOLESTEROL HIGH
     Route: 048
     Dates: start: 20120710
  3. ATORVASTATIN [Suspect]
     Indication: CHOLESTEROL HIGH

REACTIONS (2)
  - Herpes zoster [None]
  - Pain [None]
